FAERS Safety Report 15896485 (Version 1)
Quarter: 2019Q1

REPORT INFORMATION
  Report Type: Spontaneous
  Country: CN (occurrence: CN)
  Receive Date: 20190131
  Receipt Date: 20190131
  Transmission Date: 20190417
  Serious: Yes (Hospitalization)
  Sender: FDA-Public Use
  Company Number: CN-PFIZER INC-2019038881

PATIENT
  Age: 87 Year
  Sex: Male

DRUGS (3)
  1. VORICONAZOLE. [Suspect]
     Active Substance: VORICONAZOLE
     Indication: FUNGAL INFECTION
     Dosage: 200 MG, 2X/DAY
     Route: 041
     Dates: start: 20181205, end: 20181210
  2. SODIUM CHLORIDE. [Concomitant]
     Active Substance: SODIUM CHLORIDE
     Indication: VEHICLE SOLUTION USE
     Dosage: 100 ML, 2X/DAY
     Route: 041
     Dates: start: 20181205, end: 20181210
  3. TIGECYCLINE. [Suspect]
     Active Substance: TIGECYCLINE
     Indication: INFECTION
     Dosage: 50 MG, 2X/DAY
     Route: 041
     Dates: start: 20181205, end: 20181210

REACTIONS (1)
  - Blood bilirubin increased [Unknown]

NARRATIVE: CASE EVENT DATE: 20181210
